FAERS Safety Report 4578965-7 (Version None)
Quarter: 2005Q1

REPORT INFORMATION
  Report Type: 
  Country: None (occurrence: None)
  Receive Date: 20050211
  Receipt Date: 20041123
  Transmission Date: 20050727
  Serious: Yes (Life-Threatening, Hospitalization, Disabling, Other)
  Sender: FDA-Public Use
  Company Number: US-MERCK-0411USA03698

PATIENT
  Age: 60 Year
  Sex: Male
  Weight: 79 kg

DRUGS (14)
  1. VIOXX [Suspect]
     Indication: OSTEOARTHRITIS
     Route: 048
     Dates: start: 20010212, end: 20040823
  2. VIOXX [Suspect]
     Indication: ARTHRITIS
     Route: 048
     Dates: start: 20010212, end: 20040823
  3. LANOXIN [Concomitant]
     Indication: CARDIAC FAILURE CONGESTIVE
     Route: 048
  4. LANOXIN [Concomitant]
     Indication: ATRIAL FIBRILLATION
     Route: 048
  5. PRINIVIL [Concomitant]
     Indication: HYPERTENSION
     Route: 048
  6. PRINIVIL [Concomitant]
     Route: 048
  7. TRICOR [Concomitant]
     Indication: BLOOD CHOLESTEROL INCREASED
     Route: 048
  8. K-DUR 10 [Concomitant]
     Indication: SUBSTITUTION THERAPY
     Route: 048
  9. NEURONTIN [Concomitant]
     Route: 048
  10. COUMADIN [Concomitant]
     Route: 065
     Dates: start: 20030201
  11. BETAPACE [Concomitant]
     Route: 065
  12. ARAVA [Concomitant]
     Indication: ARTHRITIS
     Route: 048
     Dates: start: 20010416, end: 20010713
  13. NITROSTAT [Concomitant]
     Route: 060
  14. ASPIRIN [Concomitant]
     Route: 065

REACTIONS (13)
  - ABDOMINAL PAIN [None]
  - ACCIDENT [None]
  - ASTHENIA [None]
  - ATRIAL FIBRILLATION [None]
  - CARDIAC FAILURE CONGESTIVE [None]
  - CHEST PAIN [None]
  - EMBOLIC STROKE [None]
  - FLANK PAIN [None]
  - GASTRIC DISORDER [None]
  - HEART INJURY [None]
  - HEMIPARESIS [None]
  - HYPOAESTHESIA [None]
  - SPINAL VASCULAR DISORDER [None]
